FAERS Safety Report 17036369 (Version 1)
Quarter: 2019Q4

REPORT INFORMATION
  Report Type: Spontaneous
  Country: US (occurrence: US)
  Receive Date: 20191114
  Receipt Date: 20191114
  Transmission Date: 20200122
  Serious: No
  Sender: FDA-Public Use
  Company Number: None

PATIENT
  Age: 65 Year
  Sex: Female

DRUGS (2)
  1. DUPIXENT [Suspect]
     Active Substance: DUPILUMAB
     Indication: DERMATITIS ATOPIC
     Dosage: ?          OTHER FREQUENCY:EVERY 2 WEEKS;?
     Route: 058
     Dates: start: 20190709, end: 20191114
  2. LOTEPREDNOL [Concomitant]
     Active Substance: LOTEPREDNOL
     Dates: start: 20191001, end: 20191021

REACTIONS (5)
  - Erythema [None]
  - Fatigue [None]
  - Swelling [None]
  - Eye pruritus [None]
  - Arthralgia [None]
